FAERS Safety Report 7226977-7 (Version None)
Quarter: 2011Q1

REPORT INFORMATION
  Report Type: 
  Country: None (occurrence: None)
  Receive Date: 20110114
  Receipt Date: 20110104
  Transmission Date: 20110831
  Serious: Yes (Other)
  Sender: FDA-Public Use
  Company Number: US-JNJCH-2011001033

PATIENT
  Sex: Female

DRUGS (1)
  1. MULTI-SYMPTOM ROLAIDS PLUS ANTI-GAS SOFTCHEWS FRUIT [Suspect]
     Indication: PRODUCT USED FOR UNKNOWN INDICATION
     Dosage: TEXT:UNSPECIFIED FIVE TO SIX TIMES
     Route: 048

REACTIONS (2)
  - PRODUCT QUALITY ISSUE [None]
  - TOOTH FRACTURE [None]
